FAERS Safety Report 14992941 (Version 1)
Quarter: 2018Q2

REPORT INFORMATION
  Report Type: Other
  Country: IT (occurrence: IT)
  Receive Date: 20180610
  Receipt Date: 20180610
  Transmission Date: 20180711
  Serious: Yes (Other)
  Sender: FDA-Public Use
  Company Number: IT-DEXPHARM-20180375

PATIENT
  Sex: Male

DRUGS (1)
  1. CHLORHEXIDINE 2 % IN ALCOHOL [Suspect]
     Active Substance: ALCOHOL\CHLORHEXIDINE GLUCONATE

REACTIONS (1)
  - Chemical burn [Recovered/Resolved]
